FAERS Safety Report 8007624-3 (Version None)
Quarter: 2011Q4

REPORT INFORMATION
  Report Type: 
  Country: None (occurrence: None)
  Receive Date: 20111227
  Receipt Date: 20111219
  Transmission Date: 20120403
  Serious: Yes (Disabling)
  Sender: FDA-Public Use
  Company Number: GB-ABBOTT-11P-167-0885167-00

PATIENT
  Age: 30 Year
  Sex: Female

DRUGS (4)
  1. HUMIRA [Suspect]
     Indication: RHEUMATOID ARTHRITIS
     Dosage: TOTAL
     Route: 058
     Dates: start: 20110902, end: 20110902
  2. AMITRIPTYLINE [Concomitant]
     Indication: PAIN
     Dosage: LONG TERM
     Route: 048
  3. METHOTREXATE [Concomitant]
     Indication: RHEUMATOID ARTHRITIS
     Dosage: LONG TERM
     Route: 048
  4. ETODOLAC [Concomitant]
     Indication: RHEUMATOID ARTHRITIS
     Dosage: LONG TERM
     Route: 048

REACTIONS (2)
  - DEPRESSION [None]
  - PSYCHOTIC DISORDER [None]
